FAERS Safety Report 19104755 (Version 2)
Quarter: 2021Q2

REPORT INFORMATION
  Report Type: Spontaneous
  Country: PK (occurrence: PK)
  Receive Date: 20210408
  Receipt Date: 20210503
  Transmission Date: 20210717
  Serious: Yes (Other)
  Sender: FDA-Public Use
  Company Number: PK-AMGEN-PAKSP2021052070

PATIENT
  Age: 47 Year
  Sex: Male

DRUGS (7)
  1. SEACAL [CALCIUM GLUCONATE;CALCIUM LACTOBIONATE] [Concomitant]
     Dosage: UNK, 2X/DAY 1+0+1
  2. DELTACORTRIL [PREDNISOLONE ACETATE] [Concomitant]
     Dosage: 5 MG, 1X/DAY (1+0+0)
  3. ENBREL [Suspect]
     Active Substance: ETANERCEPT
     Indication: PSORIATIC ARTHROPATHY
     Dosage: 50 MG, WEEKLY
     Route: 058
  4. RISEK [OMEPRAZOLE] [Concomitant]
     Indication: GASTRIC DISORDER
     Dosage: 20 MG, 1X/DAY (1+0+0)
  5. CARA [CLOTRIMAZOLE] [Concomitant]
     Dosage: 20 MG (1/2+0+0)
  6. DISTALGESIC [DEXTROPROPOXYPHENE HYDROCHLORIDE;PARACETAMOL] [Concomitant]
     Indication: PAIN
     Dosage: 1+0+1
  7. VOLTRAL [DICLOFENAC SODIUM] [Concomitant]
     Dosage: UNK, 1+1

REACTIONS (2)
  - Glycosylated haemoglobin abnormal [Unknown]
  - Psoriatic arthropathy [Unknown]
